FAERS Safety Report 13634420 (Version 1)
Quarter: 2017Q2

REPORT INFORMATION
  Report Type: Spontaneous
  Country: US (occurrence: US)
  Receive Date: 20170531
  Receipt Date: 20170531
  Transmission Date: 20170830
  Serious: No
  Sender: FDA-Public Use
  Company Number: US-ASTELLAS-1628391

PATIENT
  Age: 71 Year
  Sex: Female

DRUGS (15)
  1. XANAX [Concomitant]
     Active Substance: ALPRAZOLAM
  2. KLOR-CON [Concomitant]
     Active Substance: POTASSIUM CHLORIDE
  3. DOXYCYCLINE. [Concomitant]
     Active Substance: DOXYCYCLINE
  4. TUMS [Concomitant]
     Active Substance: CALCIUM CARBONATE
  5. CLARITIN [Concomitant]
     Active Substance: LORATADINE
  6. ERGOCALCIFEROL. [Concomitant]
     Active Substance: ERGOCALCIFEROL
  7. LEVOTHYROXINE. [Concomitant]
     Active Substance: LEVOTHYROXINE
  8. ADVAIR HFA [Concomitant]
     Active Substance: FLUTICASONE PROPIONATE\SALMETEROL XINAFOATE
  9. IBUPROFEN. [Concomitant]
     Active Substance: IBUPROFEN
  10. TYLENOL [Concomitant]
     Active Substance: ACETAMINOPHEN
  11. TARCEVA [Suspect]
     Active Substance: ERLOTINIB HYDROCHLORIDE
     Indication: PRODUCT USED FOR UNKNOWN INDICATION
     Route: 065
     Dates: start: 20140626
  12. PROAIR HFA [Concomitant]
     Active Substance: ALBUTEROL SULFATE
  13. SYMBICORT [Concomitant]
     Active Substance: BUDESONIDE\FORMOTEROL FUMARATE DIHYDRATE
  14. VITAMIN B12 [Concomitant]
     Active Substance: CYANOCOBALAMIN
  15. ALLEGRA [Concomitant]
     Active Substance: FEXOFENADINE HYDROCHLORIDE

REACTIONS (3)
  - Eye pruritus [Unknown]
  - Onychoclasis [Unknown]
  - Nail disorder [Unknown]

NARRATIVE: CASE EVENT DATE: 20140626
